FAERS Safety Report 10925501 (Version 2)
Quarter: 2015Q3

REPORT INFORMATION
  Report Type: Spontaneous
  Country: AR (occurrence: AR)
  Receive Date: 20150318
  Receipt Date: 20150915
  Transmission Date: 20151125
  Serious: Yes (Other)
  Sender: FDA-Public Use
  Company Number: AR-PFIZER INC-2015078558

PATIENT
  Age: 66 Year
  Sex: Female

DRUGS (1)
  1. XELJANZ [Suspect]
     Active Substance: TOFACITINIB CITRATE
     Indication: RHEUMATOID ARTHRITIS
     Dosage: UNK
     Dates: start: 20140708

REACTIONS (6)
  - Hip fracture [Unknown]
  - Arthropathy [Unknown]
  - Pain [Unknown]
  - Gait disturbance [Unknown]
  - Injury [Unknown]
  - Drug ineffective [Unknown]
